FAERS Safety Report 20577362 (Version 1)
Quarter: 2022Q1

REPORT INFORMATION
  Report Type: Spontaneous
  Country: US (occurrence: None)
  Receive Date: 20220309
  Receipt Date: 20220309
  Transmission Date: 20220423
  Serious: No
  Sender: FDA-Public Use
  Company Number: None

PATIENT
  Sex: Female
  Weight: 63.8 kg

DRUGS (6)
  1. CAPECITABINE [Suspect]
     Active Substance: CAPECITABINE
     Indication: Bile duct cancer
     Dosage: OTHER FREQUENCY : BID 14 OF 21 DAYS;?
     Route: 048
  2. ASPIRIN [Concomitant]
     Active Substance: ASPIRIN
  3. VITAMINS [Concomitant]
     Active Substance: VITAMINS
  4. LOPERAMIDE [Concomitant]
     Active Substance: LOPERAMIDE
  5. ZOFRAN [Concomitant]
     Active Substance: ONDANSETRON HYDROCHLORIDE
  6. PROCHLORPERAZINE [Concomitant]
     Active Substance: PROCHLORPERAZINE

REACTIONS (4)
  - Onychomycosis [None]
  - Localised infection [None]
  - Swelling [None]
  - Inflammation [None]
